FAERS Safety Report 9879400 (Version 4)
Quarter: 2014Q2

REPORT INFORMATION
  Report Type: Spontaneous
  Country: JP (occurrence: JP)
  Receive Date: 20140206
  Receipt Date: 20140414
  Transmission Date: 20141212
  Serious: Yes (Life-Threatening, Other)
  Sender: FDA-Public Use
  Company Number: JP-CELGENEUS-087-21660-14020392

PATIENT
  Age: 81 Year
  Sex: Male
  Weight: 64 kg

DRUGS (30)
  1. ABRAXANE [Suspect]
     Indication: SQUAMOUS CELL CARCINOMA OF LUNG
     Dosage: 160 MILLIGRAM
     Route: 041
     Dates: start: 20140115, end: 20140122
  2. CARBOPLATIN [Suspect]
     Indication: SQUAMOUS CELL CARCINOMA OF LUNG
     Dosage: 370 MILLIGRAM
     Route: 041
     Dates: start: 20140115, end: 20140115
  3. AMARYL [Concomitant]
     Indication: DIABETES MELLITUS
     Dosage: .5 MILLIGRAM
     Route: 048
     Dates: start: 20131108
  4. AMLODIN [Concomitant]
     Indication: HYPERTENSION
     Dosage: 5 MILLIGRAM
     Route: 048
  5. TEGAFUR [Concomitant]
     Indication: PRODUCT USED FOR UNKNOWN INDICATION
     Route: 065
     Dates: start: 20130225
  6. TEGAFUR [Concomitant]
     Route: 065
     Dates: start: 20130508, end: 20131106
  7. URACIL [Concomitant]
     Indication: PRODUCT USED FOR UNKNOWN INDICATION
     Route: 065
     Dates: start: 20130225
  8. URACIL [Concomitant]
     Route: 065
     Dates: start: 20130508, end: 20131106
  9. CALCIUM FOLINATE [Concomitant]
     Indication: PRODUCT USED FOR UNKNOWN INDICATION
     Route: 065
     Dates: start: 20130225
  10. CALCIUM FOLINATE [Concomitant]
     Route: 065
     Dates: start: 20130508, end: 20131106
  11. AVASTIN [Concomitant]
     Indication: HAEMOPTYSIS
     Route: 065
     Dates: start: 20130508, end: 20130508
  12. GRANULOCYTE COLONY-STIMULATING FACTOR NOS [Concomitant]
     Indication: PRODUCT USED FOR UNKNOWN INDICATION
     Route: 065
     Dates: start: 20140124
  13. MEROPENEM [Concomitant]
     Indication: PRODUCT USED FOR UNKNOWN INDICATION
     Dosage: 2 GRAM
     Route: 065
     Dates: start: 20140127
  14. MEROPENEM [Concomitant]
     Dosage: 3 GRAM
     Route: 065
     Dates: start: 20140129
  15. RACOL [Concomitant]
     Indication: PRODUCT USED FOR UNKNOWN INDICATION
     Route: 065
     Dates: start: 20140204
  16. LEVOFLOXACIN HYDRATE [Concomitant]
     Indication: PRODUCT USED FOR UNKNOWN INDICATION
     Dosage: 500 MILLIGRAM
     Route: 065
     Dates: start: 20140205
  17. LIPITOR [Concomitant]
     Indication: HYPERLIPIDAEMIA
     Dosage: 10 MILLIGRAM
     Route: 048
  18. URIEF [Concomitant]
     Indication: PRODUCT USED FOR UNKNOWN INDICATION
     Dosage: 8 MILLIGRAM
     Route: 048
  19. EQUA [Concomitant]
     Indication: DIABETES MELLITUS
     Dosage: 100 MILLIGRAM
     Route: 048
  20. MUCOSTA [Concomitant]
     Indication: PRODUCT USED FOR UNKNOWN INDICATION
     Dosage: 200 MILLIGRAM
     Route: 048
  21. PROSTAL [Concomitant]
     Indication: PRODUCT USED FOR UNKNOWN INDICATION
     Dosage: 50 MILLIGRAM
     Route: 048
  22. ZANTAC [Concomitant]
     Indication: PRODUCT USED FOR UNKNOWN INDICATION
     Dosage: 300 MILLIGRAM
     Route: 048
     Dates: start: 20140119
  23. FAMOTIDINE [Concomitant]
     Indication: PRODUCT USED FOR UNKNOWN INDICATION
     Dosage: 20 MILLIGRAM
     Route: 048
     Dates: start: 20140118
  24. DAIKENCHUTO [Concomitant]
     Indication: PRODUCT USED FOR UNKNOWN INDICATION
     Dosage: 7.5 GRAM
     Route: 048
  25. KLARICID [Concomitant]
     Indication: INTERSTITIAL LUNG DISEASE
     Dosage: 200 MILLIGRAM
     Route: 048
  26. MAGMITT [Concomitant]
     Indication: PRODUCT USED FOR UNKNOWN INDICATION
     Dosage: 990 MILLIGRAM
     Route: 048
  27. PURSENNID [Concomitant]
     Indication: PRODUCT USED FOR UNKNOWN INDICATION
     Dosage: 24 MILLIGRAM
     Route: 048
  28. DEQUALINIUM CHLORIDE [Concomitant]
     Indication: PRODUCT USED FOR UNKNOWN INDICATION
     Dosage: 3 DOSAGE FORMS
     Route: 048
  29. ITRACONAZOLE [Concomitant]
     Indication: ASPERGILLOMA
     Dosage: 200 MILLIGRAM
     Route: 065
     Dates: start: 20140114
  30. FUNGUARD [Concomitant]
     Indication: ASPERGILLOMA
     Dosage: 150 MILLIGRAM
     Route: 065
     Dates: start: 20140128, end: 20140128

REACTIONS (4)
  - Ileus paralytic [Recovered/Resolved]
  - Febrile neutropenia [Recovered/Resolved]
  - Dysgeusia [Unknown]
  - Neuropathy peripheral [Unknown]
